FAERS Safety Report 7844851-X (Version None)
Quarter: 2011Q4

REPORT INFORMATION
  Report Type: 
  Country: None (occurrence: None)
  Receive Date: 20111025
  Receipt Date: 20111017
  Transmission Date: 20120403
  Serious: Yes (Hospitalization)
  Sender: FDA-Public Use
  Company Number: US-GLAXOSMITHKLINE-B0756297A

PATIENT
  Sex: Female

DRUGS (11)
  1. COREG [Concomitant]
     Dosage: 6.25MG TWICE PER DAY
  2. PRANDIN [Concomitant]
     Dosage: 4MG THREE TIMES PER DAY
  3. POTASSIUM CHLORIDE [Concomitant]
     Dosage: 20MEQ PER DAY
  4. ASPIRIN [Concomitant]
     Dosage: 325MG PER DAY
  5. AVANDAMET [Suspect]
     Indication: DIABETES MELLITUS
     Route: 048
  6. LASIX [Concomitant]
     Dosage: 40MG TWICE PER DAY
  7. JANUVIA [Concomitant]
     Dosage: 100MG PER DAY
  8. IMDUR [Concomitant]
     Dosage: 30MG PER DAY
  9. LISINOPRIL [Concomitant]
     Dosage: 20MG PER DAY
  10. LIPITOR [Concomitant]
     Dosage: 10MG PER DAY
  11. COUMADIN [Concomitant]

REACTIONS (6)
  - OEDEMA [None]
  - CARDIAC DISORDER [None]
  - PAIN [None]
  - CARDIAC FAILURE CONGESTIVE [None]
  - HYPERTENSION [None]
  - CEREBROVASCULAR ACCIDENT [None]
